FAERS Safety Report 9480152 (Version 1)
Quarter: 2013Q3

REPORT INFORMATION
  Report Type: Spontaneous
  Country: US (occurrence: US)
  Receive Date: 20130828
  Receipt Date: 20130828
  Transmission Date: 20140515
  Serious: Yes (Hospitalization)
  Sender: FDA-Public Use
  Company Number: US-AMGEN-KDL070045

PATIENT
  Age: 53 Year
  Sex: Male

DRUGS (3)
  1. ENBREL [Suspect]
     Indication: CONNECTIVE TISSUE DISORDER
     Dosage: 25 MG, 2 TIMES/WK
     Route: 058
     Dates: start: 20010116, end: 20010227
  2. METHOTREXATE [Concomitant]
  3. AZATHIOPRINE [Concomitant]

REACTIONS (3)
  - Pneumonia bacterial [Unknown]
  - Myositis [Unknown]
  - Condition aggravated [Unknown]
